FAERS Safety Report 5607676-1 (Version None)
Quarter: 2008Q1

REPORT INFORMATION
  Report Type: 
  Country: None (occurrence: None)
  Receive Date: 20080128
  Receipt Date: 20080128
  Transmission Date: 20080703
  Serious: Yes (Other)
  Sender: FDA-Public Use
  Company Number: None

PATIENT
  Age: 33 Year
  Sex: Female
  Weight: 60.3284 kg

DRUGS (3)
  1. TRIMETHOBENZAMIDE 200 MG HOSPIRA [Suspect]
     Indication: NAUSEA
     Dosage: 200 MG Q6H PRN IM
     Route: 030
     Dates: start: 20080125, end: 20080126
  2. TRIMETHOBENZAMIDE 200 MG HOSPIRA [Suspect]
     Indication: VOMITING
     Dosage: 200 MG Q6H PRN IM
     Route: 030
     Dates: start: 20080125, end: 20080126
  3. TRIMETHOBENZAMIDE 200 MG HOSPIRA [Suspect]

REACTIONS (2)
  - INJECTION SITE PAIN [None]
  - OEDEMA PERIPHERAL [None]
